FAERS Safety Report 23786018 (Version 13)
Quarter: 2025Q1

REPORT INFORMATION
  Report Type: Report from Study
  Country: US (occurrence: US)
  Receive Date: 20240426
  Receipt Date: 20250325
  Transmission Date: 20250409
  Serious: Yes (Other)
  Sender: TAKEDA
  Company Number: US-TAKEDA-2024TUS004727

PATIENT
  Sex: Female
  Weight: 70.3 kg

DRUGS (17)
  1. HUMAN IMMUNOGLOBULIN G\HYALURONIDASE RECOMBINANT HUMAN [Suspect]
     Active Substance: HUMAN IMMUNOGLOBULIN G\HYALURONIDASE (HUMAN RECOMBINANT)
     Indication: Immune system disorder
     Dosage: 25 GRAM, Q3WEEKS
     Dates: start: 20240117
  2. SODIUM CHLORIDE [Concomitant]
     Active Substance: SODIUM CHLORIDE
  3. ACETAMINOPHEN [Concomitant]
     Active Substance: ACETAMINOPHEN
  4. EPINEPHRINE [Concomitant]
     Active Substance: EPINEPHRINE
  5. ESCITALOPRAM OXALATE [Concomitant]
     Active Substance: ESCITALOPRAM OXALATE
  6. ALBUTEROL SULFATE [Concomitant]
     Active Substance: ALBUTEROL SULFATE
  7. LIDOCAINE [Concomitant]
     Active Substance: LIDOCAINE
  8. FLUTICASONE PROPIONATE [Concomitant]
     Active Substance: FLUTICASONE PROPIONATE
  9. MONTELUKAST SODIUM [Concomitant]
     Active Substance: MONTELUKAST SODIUM
  10. CALCIUM [Concomitant]
     Active Substance: CALCIUM
  11. ZINC [Concomitant]
     Active Substance: ZINC
  12. DIPHENHYDRAMINE HYDROCHLORIDE [Concomitant]
     Active Substance: DIPHENHYDRAMINE HYDROCHLORIDE
  13. PRAMIPEXOLE DIHYDROCHLORIDE [Concomitant]
     Active Substance: PRAMIPEXOLE DIHYDROCHLORIDE
  14. HYDROXYZINE HYDROCHLORIDE [Concomitant]
     Active Substance: HYDROXYZINE HYDROCHLORIDE
  15. SYMBICORT [Concomitant]
     Active Substance: BUDESONIDE\FORMOTEROL FUMARATE DIHYDRATE
  16. MUCINEX [Concomitant]
     Active Substance: GUAIFENESIN
  17. ALBUTEROL SULFATE [Concomitant]
     Active Substance: ALBUTEROL SULFATE

REACTIONS (18)
  - Lower respiratory tract infection [Unknown]
  - Diverticulitis [Recovered/Resolved]
  - Infusion site discharge [Unknown]
  - Insurance issue [Unknown]
  - Pneumovirus test positive [Unknown]
  - Nasopharyngitis [Unknown]
  - Viral infection [Unknown]
  - Infusion site scar [Unknown]
  - Contusion [Unknown]
  - Product dose omission issue [Unknown]
  - Fall [Recovering/Resolving]
  - Illness [Recovering/Resolving]
  - Influenza [Unknown]
  - Needle issue [Unknown]
  - Asthma [Unknown]
  - Malaise [Unknown]
  - Infusion site pain [Unknown]
  - Headache [Unknown]
